FAERS Safety Report 4622246-X (Version None)
Quarter: 2005Q1

REPORT INFORMATION
  Report Type: 
  Country: None (occurrence: None)
  Receive Date: 20050323
  Receipt Date: 20050323
  Transmission Date: 20050727
  Serious: Yes (Life-Threatening)
  Sender: FDA-Public Use
  Company Number: None

PATIENT
  Age: 60 Year
  Sex: Female
  Weight: 97.5234 kg

DRUGS (11)
  1. LOPID [Suspect]
     Indication: HYPERLIPIDAEMIA
     Dosage: 600 BID ORAL
     Route: 048
     Dates: start: 20040901, end: 20050301
  2. ZOCOR [Suspect]
     Indication: HYPERLIPIDAEMIA
     Dosage: 40  QD  ORAL
     Route: 048
     Dates: start: 20040901, end: 20050301
  3. SEROZONE [Concomitant]
  4. CLONAZEPAM [Concomitant]
  5. LISINOPRIL [Concomitant]
  6. CLONIDINE [Concomitant]
  7. ASPIRIN [Concomitant]
  8. METFORMIN HCL [Concomitant]
  9. METOPROLOL TARTRATE [Concomitant]
  10. PROTONIX [Concomitant]
  11. GLYBURIDE [Concomitant]

REACTIONS (2)
  - RENAL FAILURE ACUTE [None]
  - RHABDOMYOLYSIS [None]
